FAERS Safety Report 16070010 (Version 2)
Quarter: 2019Q2

REPORT INFORMATION
  Report Type: Report from Study
  Country: US (occurrence: US)
  Receive Date: 20190314
  Receipt Date: 20190401
  Transmission Date: 20190711
  Serious: Yes (Other)
  Sender: FDA-Public Use
  Company Number: PHEH2019US010693

PATIENT
  Age: 61 Year
  Sex: Female

DRUGS (1)
  1. COSENTYX [Suspect]
     Active Substance: SECUKINUMAB
     Indication: PSORIASIS
     Dosage: UNK
     Route: 065

REACTIONS (7)
  - Syncope [Unknown]
  - Malaise [Unknown]
  - Nasopharyngitis [Unknown]
  - Sinusitis [Unknown]
  - Head injury [Unknown]
  - Chills [Unknown]
  - Urinary tract infection [Unknown]
